FAERS Safety Report 12388520 (Version 1)
Quarter: 2016Q2

REPORT INFORMATION
  Report Type: Spontaneous
  Country: FR (occurrence: FR)
  Receive Date: 20160520
  Receipt Date: 20160520
  Transmission Date: 20160815
  Serious: Yes (Hospitalization)
  Sender: FDA-Public Use
  Company Number: FR-FRESENIUS KABI-FK201602748

PATIENT
  Age: 50 Year
  Sex: Female

DRUGS (1)
  1. METHYLPREDNISOLONE (MANUFACTURER UNKNOWN) [Suspect]
     Active Substance: METHYLPREDNISOLONE
     Indication: MULTIPLE SCLEROSIS RELAPSE
     Route: 042

REACTIONS (3)
  - Suicidal behaviour [Recovering/Resolving]
  - Overdose [Recovering/Resolving]
  - Suicide attempt [Recovering/Resolving]
